FAERS Safety Report 7301092-2 (Version None)
Quarter: 2011Q1

REPORT INFORMATION
  Report Type: 
  Country: None (occurrence: None)
  Receive Date: 20110218
  Receipt Date: 20110215
  Transmission Date: 20110831
  Serious: Yes (Death, Hospitalization, Other)
  Sender: FDA-Public Use
  Company Number: US-GENZYME-CLOF-1000884

PATIENT
  Sex: Female
  Weight: 27.1 kg

DRUGS (10)
  1. ACYCLOVIR [Concomitant]
     Indication: HERPES ZOSTER
     Dosage: UNK
     Route: 065
     Dates: start: 20091201
  2. SYNTHROID [Concomitant]
     Indication: GOITRE
     Dosage: UNK UNK, UNK
     Route: 065
  3. FRESH FROZEN PLASMA [Concomitant]
     Indication: BLOOD FIBRINOGEN DECREASED
     Dosage: UNK UNK, UNK
     Route: 065
     Dates: start: 20091001
  4. TOPOTECAN [Suspect]
     Indication: ACUTE MYELOID LEUKAEMIA
     Dosage: 1 MG/M2, QDX5
     Route: 042
     Dates: start: 20091230, end: 20100103
  5. VINORELBINE [Suspect]
     Indication: ACUTE MYELOID LEUKAEMIA
     Dosage: 2 MG/M2, QD
     Route: 042
     Dates: start: 20091230, end: 20091230
  6. DEXAMETHASONE [Suspect]
     Indication: ACUTE MYELOID LEUKAEMIA
     Dosage: UNK UNK, UNK
     Route: 042
     Dates: start: 20100101
  7. CLOLAR [Suspect]
     Indication: ACUTE MYELOID LEUKAEMIA
     Dosage: 40 MG/M2, QDX5
     Route: 042
     Dates: start: 20100102, end: 20100106
  8. THIOTEPA [Suspect]
     Indication: ACUTE MYELOID LEUKAEMIA
     Dosage: 15 MG/M2, QD
     Route: 042
     Dates: start: 20100101, end: 20100101
  9. VINORELBINE [Suspect]
     Dosage: 2 MG/M2, QD
     Route: 042
     Dates: start: 20100113, end: 20100113
  10. VINORELBINE [Suspect]
     Dosage: 2 MG/M2, QD
     Route: 042
     Dates: start: 20100106, end: 20100106

REACTIONS (7)
  - APPENDICITIS [None]
  - DEVICE RELATED INFECTION [None]
  - NEUTROPENIA [None]
  - ENTERITIS INFECTIOUS [None]
  - GASTROINTESTINAL FUNGAL INFECTION [None]
  - FEBRILE NEUTROPENIA [None]
  - ACUTE MYELOID LEUKAEMIA [None]
